FAERS Safety Report 4751134-3 (Version None)
Quarter: 2005Q3

REPORT INFORMATION
  Report Type: 
  Country: None (occurrence: None)
  Receive Date: 20050824
  Receipt Date: 20050812
  Transmission Date: 20060218
  Serious: Yes (Other)
  Sender: FDA-Public Use
  Company Number: JP-BRISTOL-MYERS SQUIBB COMPANY-13074216

PATIENT
  Age: 56 Year
  Sex: Female

DRUGS (2)
  1. TAXOL [Suspect]
     Indication: OVARIAN CANCER
     Route: 041
  2. PARAPLATIN [Suspect]
     Indication: OVARIAN CANCER
     Route: 041

REACTIONS (3)
  - DIARRHOEA [None]
  - HYPOKALAEMIA [None]
  - MYOPATHY [None]
